FAERS Safety Report 8888595 (Version 1)
Quarter: 2012Q4

REPORT INFORMATION
  Report Type: 
  Country: US (occurrence: US)
  Receive Date: 20121106
  Receipt Date: 20121106
  Transmission Date: 20130627
  Serious: Yes (Hospitalization, Other)
  Sender: FDA-Public Use
  Company Number: US-009507513-0706USA00844

PATIENT

DRUGS (1)
  1. FOSAMAX [Suspect]
     Indication: OSTEOPOROSIS
     Dosage: 70 mg, QW
     Route: 048
     Dates: end: 200509

REACTIONS (68)
  - Osteomyelitis [Unknown]
  - Hip fracture [Unknown]
  - Hip arthroplasty [Unknown]
  - Type 2 diabetes mellitus [Unknown]
  - Muscle haemorrhage [Unknown]
  - Chest pain [Unknown]
  - Postoperative fever [Unknown]
  - Arthropathy [Unknown]
  - Anaemia postoperative [Unknown]
  - Osteomyelitis [Unknown]
  - Cellulitis [Unknown]
  - Arthropathy [Unknown]
  - Myocardial infarction [Unknown]
  - Fall [Unknown]
  - Loss of consciousness [Unknown]
  - Knee arthroplasty [Unknown]
  - Bundle branch block left [Unknown]
  - Urinary tract infection [Unknown]
  - Arthralgia [Unknown]
  - Neuralgia [Unknown]
  - Neuritis [Unknown]
  - Radiculitis [Unknown]
  - Dysphonia [Unknown]
  - Lumbar radiculopathy [Unknown]
  - Syncope [Unknown]
  - Urinary tract infection [Unknown]
  - Conjunctivitis [Unknown]
  - Bone loss [Unknown]
  - Inguinal hernia [Unknown]
  - Hiatus hernia [Unknown]
  - Bronchitis [Unknown]
  - Arthritis [Not Recovered/Not Resolved]
  - Asthma [Unknown]
  - Pulmonary mass [Unknown]
  - Adverse drug reaction [Unknown]
  - Gait disturbance [Unknown]
  - Mouth cyst [Unknown]
  - Cataract [Unknown]
  - Paraesthesia [Unknown]
  - Sinus congestion [Unknown]
  - Impaired healing [Unknown]
  - Osteoarthritis [Unknown]
  - Tenosynovitis [Unknown]
  - Road traffic accident [Unknown]
  - Pneumonia [Unknown]
  - Pleuritic pain [Unknown]
  - Bronchospasm [Unknown]
  - Herpes zoster [Unknown]
  - Fall [Unknown]
  - Contusion [Unknown]
  - Contusion [Unknown]
  - Pneumoconiosis [Unknown]
  - Malaise [Unknown]
  - Asthenia [Unknown]
  - Hypercholesterolaemia [Unknown]
  - Osteoarthritis [Unknown]
  - Osteomyelitis [Unknown]
  - Intervertebral disc protrusion [Unknown]
  - Actinic keratosis [Unknown]
  - Road traffic accident [Unknown]
  - Arthralgia [Unknown]
  - Pain in extremity [Unknown]
  - Gastrooesophageal reflux disease [Unknown]
  - Musculoskeletal discomfort [Unknown]
  - Oedema peripheral [Unknown]
  - Diarrhoea [Recovered/Resolved]
  - Muscle spasms [Unknown]
  - Headache [Unknown]
